FAERS Safety Report 10599353 (Version 1)
Quarter: 2014Q4

REPORT INFORMATION
  Report Type: Report from Study
  Country: KR (occurrence: KR)
  Receive Date: 20141121
  Receipt Date: 20141121
  Transmission Date: 20150529
  Serious: Yes (Hospitalization)
  Sender: FDA-Public Use
  Company Number: KR-ABBVIE-14P-286-1309894-00

PATIENT
  Age: 11 Month
  Sex: Male

DRUGS (12)
  1. ASPIRIN MICRO [Concomitant]
     Indication: PROPHYLAXIS
  2. ERDOSTEINE [Concomitant]
     Active Substance: ERDOSTEINE
     Indication: RESPIRATORY TRACT INFECTION
     Route: 048
     Dates: start: 20140221, end: 20140224
  3. LEVOCETIRIZINE HCL [Concomitant]
     Indication: RESPIRATORY TRACT INFECTION
     Route: 048
     Dates: start: 20140221, end: 20140224
  4. ASPIRIN MICRO [Concomitant]
     Indication: POSTOPERATIVE THROMBOSIS
     Route: 048
     Dates: start: 20130930, end: 20140315
  5. ENALAPRIL [Concomitant]
     Active Substance: ENALAPRIL
     Indication: CARDIAC FAILURE
     Route: 048
     Dates: start: 20130930, end: 20140315
  6. PALIVIZUMAB [Suspect]
     Active Substance: PALIVIZUMAB
     Route: 030
     Dates: start: 20131209, end: 20131209
  7. OSELTAMIVIR PHOSPHATE [Concomitant]
     Active Substance: OSELTAMIVIR PHOSPHATE
     Indication: INFLUENZA
     Route: 048
     Dates: start: 20140221, end: 20140224
  8. PALIVIZUMAB [Suspect]
     Active Substance: PALIVIZUMAB
     Route: 030
     Dates: start: 20140324, end: 20140324
  9. PALIVIZUMAB [Suspect]
     Active Substance: PALIVIZUMAB
     Indication: PRODUCT USED FOR UNKNOWN INDICATION
     Route: 030
     Dates: start: 20131111, end: 20131111
  10. PALIVIZUMAB [Suspect]
     Active Substance: PALIVIZUMAB
     Route: 030
     Dates: start: 20140120, end: 20140120
  11. PALIVIZUMAB [Suspect]
     Active Substance: PALIVIZUMAB
     Route: 030
     Dates: start: 20140224, end: 20140224
  12. LEVODROPROPIZINE [Concomitant]
     Active Substance: LEVODROPROPIZINE
     Indication: RESPIRATORY TRACT INFECTION
     Route: 048
     Dates: start: 20140221, end: 20140224

REACTIONS (1)
  - Respiratory syncytial virus infection [Recovered/Resolved]

NARRATIVE: CASE EVENT DATE: 20140220
